FAERS Safety Report 13368556 (Version 1)
Quarter: 2017Q1

REPORT INFORMATION
  Report Type: Spontaneous
  Country: US (occurrence: US)
  Receive Date: 20170324
  Receipt Date: 20170324
  Transmission Date: 20170429
  Serious: No
  Sender: FDA-Public Use
  Company Number: US-PFIZER INC-2017126043

PATIENT
  Sex: Female

DRUGS (1)
  1. XELJANZ XR [Suspect]
     Active Substance: TOFACITINIB CITRATE
     Dosage: 11 MG, UNK

REACTIONS (6)
  - Arthralgia [Unknown]
  - Depression [Unknown]
  - Fatigue [Unknown]
  - Joint swelling [Recovering/Resolving]
  - Sleep disorder [Unknown]
  - Musculoskeletal stiffness [Recovering/Resolving]
